FAERS Safety Report 22861976 (Version 2)
Quarter: 2023Q4

REPORT INFORMATION
  Report Type: Report from Study
  Country: US (occurrence: US)
  Receive Date: 20230824
  Receipt Date: 20231018
  Transmission Date: 20240109
  Serious: Yes (Hospitalization)
  Sender: FDA-Public Use
  Company Number: US-BIOGEN-2023BI01222363

PATIENT
  Sex: Female

DRUGS (13)
  1. TYSABRI [Suspect]
     Active Substance: NATALIZUMAB
     Indication: Multiple sclerosis
     Dosage: INFUSED OVER 1 HOUR
     Route: 050
     Dates: start: 20170324, end: 20181211
  2. TYSABRI [Suspect]
     Active Substance: NATALIZUMAB
     Dosage: INFUSED OVER 1 HOUR
     Route: 050
     Dates: start: 20220316
  3. ACETIC ACID [Concomitant]
     Active Substance: ACETIC ACID
     Indication: Product used for unknown indication
     Dosage: 1 APPLICATION TOPICAL (ON THE SKIN) EVERY DAY
     Route: 050
  4. COLLAGENASE [Concomitant]
     Active Substance: COLLAGENASE CLOSTRIDIUM HISTOLYTICUM
     Indication: Product used for unknown indication
     Dosage: COLLAGENASE 250 UNITS/G TOPICAL OINTMENT; 1 APPLICATION TOPICAL (ON THE SKIN) EVERY DAY
     Route: 050
  5. GENTAMICIN [Concomitant]
     Active Substance: GENTAMICIN
     Indication: Product used for unknown indication
     Dosage: 1 APPLICATION TOPICAL (ON THE SKIN) EVERY DAY
     Route: 050
  6. MIRALAX [Concomitant]
     Active Substance: POLYETHYLENE GLYCOL 3350
     Indication: Constipation
     Dosage: EVERYDAY AS NEEDED FOR CONSTIPATION
     Route: 050
  7. AMLODIPINE [Concomitant]
     Active Substance: AMLODIPINE BESYLATE
     Indication: Product used for unknown indication
     Dosage: 1 TAB ORAL (GIVEN BY MOUTH) EVERY DAY
     Route: 050
  8. BACLOFEN [Concomitant]
     Active Substance: BACLOFEN
     Indication: Product used for unknown indication
     Dosage: 1 TAB ORAL (GIVEN BY MOUTH) 3 TIMES A DAY
     Route: 050
  9. VITAMIN D3 [Concomitant]
     Active Substance: CHOLECALCIFEROL
     Indication: Product used for unknown indication
     Dosage: 1 TAB ORAL (GIVEN BY MOUTH) EVERY DAY
     Route: 050
  10. VITAMIN B12 [Concomitant]
     Active Substance: CYANOCOBALAMIN
     Indication: Product used for unknown indication
     Dosage: 1 TAB ORAL (GIVEN BY MOUTH) EVERY DAY
     Route: 050
  11. ATROVENT HFA [Concomitant]
     Active Substance: IPRATROPIUM BROMIDE
     Indication: Wheezing
     Dosage: ATROVENT HFA 17MCG/INHALATION; 2 PUFFS INHALE (BREATHE IN) 4 TIMES A DAY AS NEEDED FOR WHEEZING
     Route: 050
  12. PROVERA [Concomitant]
     Active Substance: MEDROXYPROGESTERONE ACETATE
     Indication: Product used for unknown indication
     Dosage: 1 TAB ORAL (GIVEN BY MOUTH) 2 TIMES A DAY
     Route: 050
  13. XARELTO [Concomitant]
     Active Substance: RIVAROXABAN
     Indication: Pulmonary embolism
     Dosage: 1 TAB ORAL (GIVEN BY MOUTH) EVERY DAY
     Route: 050

REACTIONS (2)
  - Staphylococcal skin infection [Unknown]
  - Proteus infection [Unknown]
